FAERS Safety Report 8257474-8 (Version None)
Quarter: 2012Q2

REPORT INFORMATION
  Report Type: 
  Country: None (occurrence: None)
  Receive Date: 20120403
  Receipt Date: 20120330
  Transmission Date: 20120825
  Serious: Yes (Death, Hospitalization)
  Sender: FDA-Public Use
  Company Number: PHHY2012GB028027

PATIENT
  Age: 58 Year
  Sex: Male
  Weight: 52 kg

DRUGS (11)
  1. FERROUS FUMARATE [Concomitant]
     Indication: ANAEMIA
     Dosage: 305 G, QD
  2. FUROSEMIDE [Concomitant]
     Indication: CARDIAC FAILURE CONGESTIVE
     Dosage: 40 MG, QD
  3. CYCLOSPORINE [Concomitant]
     Indication: RENAL TRANSPLANT
     Route: 048
  4. LEVOTHYROXINE SODIUM [Concomitant]
     Indication: HYPOTHYROIDISM
     Dosage: 75 UG, UNK
     Route: 048
  5. NOVOMIX [Concomitant]
     Indication: DIABETES MELLITUS
     Route: 058
  6. SIMVASTATIN [Suspect]
     Indication: BLOOD CHOLESTEROL INCREASED
     Dosage: 20 MG, UNK
     Route: 048
     Dates: end: 20120303
  7. LOPERAMIDE [Concomitant]
     Indication: DIARRHOEA
     Dosage: 2 MG, PRN
  8. E45 [Concomitant]
     Route: 061
  9. ASPIRIN [Concomitant]
     Indication: MYOCARDIAL ISCHAEMIA
     Dosage: 75 MG, UNK
     Route: 048
  10. DOMPERIDONE [Concomitant]
     Indication: MALAISE
     Dosage: 10 MG, TID
  11. ACETAMINOPHEN AND CODEINE PHOSPHATE [Concomitant]
     Indication: ANALGESIC THERAPY

REACTIONS (3)
  - RHABDOMYOLYSIS [None]
  - HYPERKALAEMIA [None]
  - TRANSPLANT FAILURE [None]
